FAERS Safety Report 4334972-0 (Version None)
Quarter: 2004Q2

REPORT INFORMATION
  Report Type: 
  Country: None (occurrence: None)
  Receive Date: 20040408
  Receipt Date: 20031202
  Transmission Date: 20050107
  Serious: Yes (Hospitalization)
  Sender: FDA-Public Use
  Company Number: US-ROCHE-353059

PATIENT
  Age: 69 Year
  Sex: Male
  Weight: 99.8 kg

DRUGS (2)
  1. TICLID [Suspect]
     Route: 048
  2. TICLID [Suspect]
     Route: 048

REACTIONS (2)
  - HYPOGEUSIA [None]
  - TRANSIENT ISCHAEMIC ATTACK [None]
